FAERS Safety Report 10586283 (Version 1)
Quarter: 2014Q4

REPORT INFORMATION
  Report Type: Spontaneous
  Country: US (occurrence: US)
  Receive Date: 20141117
  Receipt Date: 20141117
  Transmission Date: 20150529
  Serious: Yes (Other)
  Sender: FDA-Public Use
  Company Number: US-AMGEN-USASP2014087378

PATIENT
  Sex: Male

DRUGS (2)
  1. EPOGEN [Suspect]
     Active Substance: ERYTHROPOIETIN
     Indication: CHRONIC KIDNEY DISEASE
     Dosage: 10000 UNIT, 3 TIMES/WK
     Route: 065
     Dates: end: 201308
  2. ARANESP [Suspect]
     Active Substance: DARBEPOETIN ALFA
     Indication: CHRONIC KIDNEY DISEASE
     Dosage: 100 UNK, WEEKLY
     Route: 065
     Dates: start: 201309, end: 20140724

REACTIONS (2)
  - Haemoglobin decreased [Unknown]
  - Drug ineffective [Unknown]

NARRATIVE: CASE EVENT DATE: 201309
